FAERS Safety Report 10908710 (Version 1)
Quarter: 2015Q1

REPORT INFORMATION
  Report Type: Spontaneous
  Country: US (occurrence: US)
  Receive Date: 20150312
  Receipt Date: 20150312
  Transmission Date: 20150721
  Serious: Yes (Death)
  Sender: FDA-Public Use
  Company Number: US-PFIZER INC-2015082766

PATIENT
  Age: 46 Year
  Sex: Female

DRUGS (1)
  1. SIROLIMUS. [Suspect]
     Active Substance: SIROLIMUS
     Indication: GRAFT VERSUS HOST DISEASE
     Dosage: 0.2 MG, UNK
     Route: 048

REACTIONS (3)
  - Respiratory failure [Fatal]
  - Off label use [Fatal]
  - Pulmonary alveolar haemorrhage [Fatal]
